FAERS Safety Report 8157259-7 (Version None)
Quarter: 2012Q1

REPORT INFORMATION
  Report Type: 
  Country: None (occurrence: None)
  Receive Date: 20120222
  Receipt Date: 20120216
  Transmission Date: 20120608
  Serious: Yes (Other)
  Sender: FDA-Public Use
  Company Number: US-PERRIGO-12US000410

PATIENT
  Sex: Male
  Weight: 19.955 kg

DRUGS (1)
  1. JUNIOR STRENGTH IBUPROFEN [Suspect]
     Indication: HEADACHE
     Dosage: 150 MG, SINGLE
     Route: 048
     Dates: start: 20120110, end: 20120110

REACTIONS (3)
  - ANAPHYLACTIC REACTION [None]
  - LIP SWELLING [None]
  - DYSPNOEA [None]
